FAERS Safety Report 19803609 (Version 1)
Quarter: 2021Q3

REPORT INFORMATION
  Report Type: Spontaneous
  Country: IR (occurrence: IR)
  Receive Date: 20210908
  Receipt Date: 20210908
  Transmission Date: 20211014
  Serious: Yes (Hospitalization, Other)
  Sender: FDA-Public Use
  Company Number: IR-LUPIN PHARMACEUTICALS INC.-2021-16661

PATIENT
  Age: 19 Year
  Sex: Male

DRUGS (6)
  1. PHENYTOIN SODIUM. [Interacting]
     Active Substance: PHENYTOIN SODIUM
     Indication: PULMONARY ECHINOCOCCIASIS
  2. ALBENDAZOLE. [Interacting]
     Active Substance: ALBENDAZOLE
     Indication: ECHINOCOCCIASIS
  3. PHENYTOIN SODIUM. [Suspect]
     Active Substance: PHENYTOIN SODIUM
     Indication: CEREBRAL DISORDER
     Dosage: UNK, TABLET
     Route: 065
  4. PHENYTOIN SODIUM. [Interacting]
     Active Substance: PHENYTOIN SODIUM
     Indication: ECHINOCOCCIASIS
  5. ALBENDAZOLE. [Interacting]
     Active Substance: ALBENDAZOLE
     Indication: CEREBRAL DISORDER
     Dosage: UNK
     Route: 048
  6. ALBENDAZOLE. [Interacting]
     Active Substance: ALBENDAZOLE
     Indication: PULMONARY ECHINOCOCCIASIS

REACTIONS (4)
  - Drug interaction [Unknown]
  - Cerebral disorder [Recovered/Resolved]
  - Disease recurrence [Recovered/Resolved]
  - Echinococciasis [Recovered/Resolved]
